FAERS Safety Report 10066884 (Version 1)
Quarter: 2014Q2

REPORT INFORMATION
  Report Type: Spontaneous
  Country: US (occurrence: US)
  Receive Date: 20140408
  Receipt Date: 20140408
  Transmission Date: 20141212
  Serious: No
  Sender: FDA-Public Use
  Company Number: US-009507513-1403USA010751

PATIENT
  Sex: Female
  Weight: 83.45 kg

DRUGS (1)
  1. GANIRELIX ACETATE INJECTION [Suspect]
     Indication: BLOOD LUTEINISING HORMONE INCREASED
     Dosage: UNK

REACTIONS (2)
  - Blood luteinising hormone increased [Unknown]
  - Incorrect product storage [Unknown]
